FAERS Safety Report 5921647-7 (Version None)
Quarter: 2008Q4

REPORT INFORMATION
  Report Type: 
  Country: None (occurrence: None)
  Receive Date: 20081017
  Receipt Date: 20081014
  Transmission Date: 20090506
  Serious: Yes (Death)
  Sender: FDA-Public Use
  Company Number: US-ASTRAZENECA-2008UW22594

PATIENT
  Age: 49 Year
  Sex: Male
  Weight: 90.7 kg

DRUGS (6)
  1. SYMBICORT [Suspect]
     Dosage: 160/4.5 MCG
     Route: 055
     Dates: start: 20080601
  2. ALBUTEROL [Concomitant]
     Dosage: 90 UG, 1-2 PUFFS Q4-6 HOURS
  3. ATENOLOL [Concomitant]
  4. DIOVAN [Concomitant]
  5. RISPERIDONE [Concomitant]
  6. AMBIEN [Concomitant]

REACTIONS (8)
  - ACTIVITIES OF DAILY LIVING IMPAIRED [None]
  - DEATH [None]
  - DYSPNOEA [None]
  - FALL [None]
  - HEAD INJURY [None]
  - INSOMNIA [None]
  - LOSS OF CONSCIOUSNESS [None]
  - PALPITATIONS [None]
